FAERS Safety Report 9644583 (Version 4)
Quarter: 2016Q1

REPORT INFORMATION
  Report Type: Report from Study
  Country: US (occurrence: US)
  Receive Date: 20131025
  Receipt Date: 20160304
  Transmission Date: 20160526
  Serious: Yes (Other)
  Sender: FDA-Public Use
  Company Number: US-AMGEN-USASP2013075080

PATIENT
  Age: 51 Year
  Sex: Female

DRUGS (1)
  1. ENBREL [Suspect]
     Active Substance: ETANERCEPT
     Indication: RHEUMATOID ARTHRITIS
     Dosage: 50 MG, QWK
     Route: 065
     Dates: start: 1999

REACTIONS (15)
  - Stress fracture [Recovered/Resolved]
  - Pain [Not Recovered/Not Resolved]
  - Rheumatoid nodule [Unknown]
  - Surgery [Unknown]
  - Post procedural complication [Unknown]
  - Arthritis [Not Recovered/Not Resolved]
  - Feeling abnormal [Unknown]
  - Ankle fracture [Unknown]
  - Hand fracture [Unknown]
  - Muscular weakness [Unknown]
  - Fracture nonunion [Unknown]
  - Sensory loss [Not Recovered/Not Resolved]
  - Ankle operation [Unknown]
  - Balance disorder [Not Recovered/Not Resolved]
  - Ulcer [Unknown]

NARRATIVE: CASE EVENT DATE: 2011
